FAERS Safety Report 6816139-7 (Version None)
Quarter: 2010Q3

REPORT INFORMATION
  Report Type: 
  Country: None (occurrence: None)
  Receive Date: 20100705
  Receipt Date: 20100330
  Transmission Date: 20110219
  Serious: Yes (Other)
  Sender: FDA-Public Use
  Company Number: US-ASTRAZENECA-2009SE21877

PATIENT
  Age: 22990 Day
  Sex: Male

DRUGS (7)
  1. SEROQUEL [Suspect]
     Route: 048
  2. SEROQUEL [Suspect]
     Dosage: TAKE ONE HALF TABLET BY MOUTH TWICE A DAY
     Route: 048
     Dates: start: 20041119
  3. ZIPRASIDONE HCL [Concomitant]
     Route: 048
     Dates: start: 20050405
  4. ATENOLOL [Concomitant]
     Route: 048
     Dates: start: 20050609
  5. SIMVASTATIN [Concomitant]
     Route: 048
     Dates: start: 20050523
  6. CLOPIDOGREL [Concomitant]
     Dates: start: 20050523
  7. GABAPENTIN [Concomitant]
     Route: 048
     Dates: start: 20050523

REACTIONS (3)
  - DIABETES MELLITUS [None]
  - NEUROPATHY PERIPHERAL [None]
  - TYPE 2 DIABETES MELLITUS [None]
